FAERS Safety Report 7686027-5 (Version None)
Quarter: 2011Q3

REPORT INFORMATION
  Report Type: 
  Country: None (occurrence: None)
  Receive Date: 20110816
  Receipt Date: 20110810
  Transmission Date: 20111222
  Serious: No
  Sender: FDA-Public Use
  Company Number: US-PFIZER INC-2011184157

PATIENT
  Sex: Male
  Weight: 95.238 kg

DRUGS (1)
  1. ADVIL LIQUI-GELS [Suspect]
     Indication: PAIN
     Dosage: UNK
     Dates: start: 20070101

REACTIONS (1)
  - SOMNOLENCE [None]
